FAERS Safety Report 15209619 (Version 1)
Quarter: 2018Q3

REPORT INFORMATION
  Report Type: Spontaneous
  Country: US (occurrence: US)
  Receive Date: 20180629
  Receipt Date: 20180629
  Transmission Date: 20181010
  Serious: Yes (Hospitalization)
  Sender: FDA-Public Use
  Company Number: None

PATIENT
  Age: 35 Year
  Sex: Male
  Weight: 105 kg

DRUGS (5)
  1. CARBOPLATIN. [Suspect]
     Active Substance: CARBOPLATIN
     Dates: end: 20180613
  2. TAXOL [Suspect]
     Active Substance: PACLITAXEL
     Dates: start: 20180511, end: 20180511
  3. NEULASTA [Suspect]
     Active Substance: PEGFILGRASTIM
     Dates: end: 20180615
  4. IFOSFAMIDE. [Suspect]
     Active Substance: IFOSFAMIDE
     Dates: start: 20180511, end: 20180513
  5. ETOPOSIDE (VP?16) [Suspect]
     Active Substance: ETOPOSIDE
     Dates: end: 20180613

REACTIONS (5)
  - Diarrhoea [None]
  - Abdominal pain [None]
  - Decreased appetite [None]
  - Muscle spasms [None]
  - Enteritis [None]

NARRATIVE: CASE EVENT DATE: 20180617
